FAERS Safety Report 6796073-1 (Version None)
Quarter: 2010Q2

REPORT INFORMATION
  Report Type: 
  Country: None (occurrence: None)
  Receive Date: 20100625
  Receipt Date: 20100616
  Transmission Date: 20101027
  Serious: Yes (Death, Hospitalization)
  Sender: FDA-Public Use
  Company Number: DE-JNJFOC-20100605581

PATIENT
  Age: 27 Year
  Sex: Male
  Weight: 55 kg

DRUGS (7)
  1. REMICADE [Suspect]
     Indication: CROHN'S DISEASE
     Route: 042
  2. HUMIRA [Suspect]
     Indication: CROHN'S DISEASE
     Route: 058
  3. AZATHIOPRIN [Suspect]
     Indication: CROHN'S DISEASE
     Dosage: TEMPORARILY STOPPED FROM NOV-2004 TO MAR-2006
     Route: 048
  4. AZATHIOPRIN [Suspect]
     Dosage: TEMPORARILY STOPPED FROM NOV-2004 TO MAR-2006
     Route: 048
  5. CIMZIA [Suspect]
     Indication: CROHN'S DISEASE
     Route: 058
  6. PREDNISOLONE [Concomitant]
     Indication: CROHN'S DISEASE
  7. MESALAMINE [Concomitant]
     Indication: CROHN'S DISEASE
     Route: 054

REACTIONS (7)
  - ADENOVIRUS INFECTION [None]
  - DRUG INEFFECTIVE [None]
  - METASTASES TO LIVER [None]
  - MULTI-ORGAN FAILURE [None]
  - PSORIASIS [None]
  - ROTAVIRUS INFECTION [None]
  - SQUAMOUS CELL CARCINOMA [None]
